FAERS Safety Report 10427859 (Version 3)
Quarter: 2014Q4

REPORT INFORMATION
  Report Type: Spontaneous
  Country: JP (occurrence: JP)
  Receive Date: 20140903
  Receipt Date: 20141224
  Transmission Date: 20150528
  Serious: Yes (Hospitalization, Disabling)
  Sender: FDA-Public Use
  Company Number: JP-BRISTOL-MYERS SQUIBB COMPANY-21347372

PATIENT
  Age: 57 Year
  Sex: Male
  Weight: 59 kg

DRUGS (7)
  1. KENACORT [Suspect]
     Active Substance: TRIAMCINOLONE
     Indication: CERVICOBRACHIAL SYNDROME
  2. CARBOCAINE [Suspect]
     Active Substance: MEPIVACAINE HYDROCHLORIDE
     Indication: PERIARTHRITIS
     Dosage: 1DF-4CC 1%  20-100 MG  RIGHT SUPRASCAPULAR NERVE, STELLATE GANGLION
     Route: 030
     Dates: start: 20140620, end: 20140808
  3. ARTZ [Concomitant]
     Indication: MUSCULOSKELETAL PAIN
     Route: 065
  4. DEXART [Concomitant]
     Active Substance: DEXAMETHASONE SODIUM PHOSPHATE
     Indication: MUSCULOSKELETAL PAIN
     Route: 065
  5. KENACORT [Suspect]
     Active Substance: TRIAMCINOLONE
     Indication: PERIARTHRITIS
     Dosage: STELLATE GANGLION  10-25 MG
     Route: 030
     Dates: start: 20140718, end: 20140808
  6. BAYASPIRIN [Concomitant]
     Active Substance: ASPIRIN
     Indication: PRODUCT USED FOR UNKNOWN INDICATION
     Route: 065
  7. CARBOCAINE [Suspect]
     Active Substance: MEPIVACAINE HYDROCHLORIDE
     Indication: CERVICOBRACHIAL SYNDROME

REACTIONS (11)
  - White blood cell count increased [Recovered/Resolved]
  - Blood pressure decreased [Recovered/Resolved]
  - Tachycardia [Recovered/Resolved]
  - Dyslalia [Recovered/Resolved]
  - C-reactive protein increased [Recovered/Resolved]
  - Spinal cord disorder [Recovering/Resolving]
  - Pyrexia [Recovered/Resolved]
  - Toothache [Recovered/Resolved]
  - Sinusitis [Recovered/Resolved]
  - Constipation [Not Recovered/Not Resolved]
  - Dyspnoea [Recovered/Resolved]

NARRATIVE: CASE EVENT DATE: 201408
